FAERS Safety Report 4661797-9 (Version None)
Quarter: 2005Q2

REPORT INFORMATION
  Report Type: 
  Country: None (occurrence: None)
  Receive Date: 20050513
  Receipt Date: 20050330
  Transmission Date: 20051028
  Serious: Yes (Life-Threatening, Hospitalization, Other)
  Sender: FDA-Public Use
  Company Number: 2005UW04979

PATIENT
  Age: 41 Year
  Sex: Male
  Weight: 145.9 kg

DRUGS (7)
  1. CRESTOR [Suspect]
     Indication: HYPERLIPIDAEMIA
     Route: 048
     Dates: start: 20040803, end: 20050318
  2. ALLOPURINOL [Suspect]
     Indication: GOUT
     Dates: start: 20050201, end: 20050201
  3. CLONIDINE [Concomitant]
  4. HYDRALAZINE [Concomitant]
  5. NORVASC [Concomitant]
  6. COREG [Concomitant]
  7. ASPIRIN [Concomitant]

REACTIONS (10)
  - CHOLECYSTITIS ACUTE [None]
  - DEEP VEIN THROMBOSIS [None]
  - DIALYSIS [None]
  - ENDOCARDITIS [None]
  - GRANULOMA [None]
  - HYPERSENSITIVITY [None]
  - NEPHRITIS INTERSTITIAL [None]
  - RENAL FAILURE ACUTE [None]
  - RESPIRATORY FAILURE [None]
  - STAPHYLOCOCCAL SEPSIS [None]
